FAERS Safety Report 6147303-0 (Version None)
Quarter: 2009Q2

REPORT INFORMATION
  Report Type: 
  Country: None (occurrence: None)
  Receive Date: 20090408
  Receipt Date: 20090403
  Transmission Date: 20091009
  Serious: Yes (Death, Other)
  Sender: FDA-Public Use
  Company Number: EE-AVENTIS-200911746EU

PATIENT
  Age: 64 Year
  Sex: Male

DRUGS (48)
  1. ENOXAPARIN SODIUM [Suspect]
     Route: 058
     Dates: start: 20090218, end: 20090227
  2. PROTEINASE INHIBITORS [Suspect]
     Route: 048
     Dates: start: 20090218, end: 20090305
  3. MAGNESIUM SULFATE [Concomitant]
     Route: 042
     Dates: start: 20090218, end: 20090218
  4. RINGER                             /01179901/ [Concomitant]
     Route: 042
     Dates: start: 20090217, end: 20090217
  5. RINGER                             /01179901/ [Concomitant]
     Route: 042
     Dates: start: 20090218, end: 20090218
  6. K CL TAB [Concomitant]
     Route: 042
     Dates: start: 20090218, end: 20090218
  7. K CL TAB [Concomitant]
     Dosage: DOSE: UNK
     Route: 042
     Dates: start: 20090313, end: 20090321
  8. K CL TAB [Concomitant]
     Route: 042
     Dates: start: 20090218, end: 20090218
  9. K CL TAB [Concomitant]
     Dosage: DOSE: UNK
     Route: 042
     Dates: start: 20090313, end: 20090321
  10. TRIFAS                             /01036501/ [Concomitant]
     Route: 048
     Dates: start: 20090220, end: 20090101
  11. IMDUR [Concomitant]
     Route: 048
     Dates: start: 20090120, end: 20090101
  12. METOPROLOL TARTRATE [Concomitant]
     Indication: TACHYCARDIA
     Route: 048
     Dates: start: 20090217, end: 20090218
  13. METOPROLOL TARTRATE [Concomitant]
     Route: 048
     Dates: start: 20090219, end: 20090101
  14. METOPROLOL TARTRATE [Concomitant]
     Route: 042
     Dates: start: 20090217, end: 20090217
  15. METOPROLOL TARTRATE [Concomitant]
     Route: 048
     Dates: start: 20090217, end: 20090218
  16. METOPROLOL TARTRATE [Concomitant]
     Route: 048
     Dates: start: 20090219, end: 20090101
  17. METOPROLOL TARTRATE [Concomitant]
     Route: 042
     Dates: start: 20090217, end: 20090217
  18. CRESTOR [Concomitant]
     Route: 048
     Dates: start: 20090217, end: 20090223
  19. IMOVANE [Concomitant]
     Route: 048
     Dates: start: 20090217, end: 20090227
  20. NOLPAZA (PANTOPRAZOLE) [Concomitant]
     Indication: PROPHYLAXIS
     Route: 048
     Dates: start: 20090219, end: 20090228
  21. NOLPAZA (PANTOPRAZOLE) [Concomitant]
     Route: 048
     Dates: start: 20090313, end: 20090315
  22. MAGNEX [Concomitant]
     Route: 048
     Dates: start: 20090217, end: 20090228
  23. LASIX [Concomitant]
     Route: 048
     Dates: start: 20090217, end: 20090218
  24. ASPIRIN [Concomitant]
     Route: 048
     Dates: start: 19990805, end: 20090217
  25. AERIUS                             /01398501/ [Concomitant]
     Indication: DERMATITIS
     Route: 048
     Dates: start: 20090217, end: 20090217
  26. AERIUS                             /01398501/ [Concomitant]
     Route: 048
     Dates: start: 20090313, end: 20090315
  27. AMINOFYLLINE [Concomitant]
     Route: 042
     Dates: start: 20090217, end: 20090217
  28. LASIX LONG [Concomitant]
     Route: 048
     Dates: start: 20080101, end: 20090217
  29. CARDACE                            /00885601/ [Concomitant]
     Route: 048
     Dates: start: 19990805, end: 20090217
  30. DIGOXIN [Concomitant]
     Route: 048
     Dates: start: 20080101, end: 20090216
  31. SPIRIX [Concomitant]
     Route: 048
     Dates: start: 20080101, end: 20090217
  32. VITAMINS, OTHER COMBINATIONS [Concomitant]
     Route: 042
     Dates: start: 20090313, end: 20090313
  33. PREDNISOLONE [Concomitant]
     Route: 042
     Dates: start: 20090313, end: 20090320
  34. VIT. B1 [Concomitant]
     Route: 042
     Dates: start: 20090313, end: 20090320
  35. VIT. B6 [Concomitant]
     Route: 042
     Dates: start: 20090313, end: 20090320
  36. DIMEDROL                           /00000401/ [Concomitant]
     Indication: DERMATITIS
     Route: 042
     Dates: start: 20090313, end: 20090313
  37. OMEPRAZOL [Concomitant]
     Indication: PROPHYLAXIS
     Route: 048
     Dates: start: 20090320, end: 20090320
  38. CARSIL [Concomitant]
     Route: 048
     Dates: start: 20090313, end: 20090320
  39. GLUCOSAE 5% [Concomitant]
     Route: 042
     Dates: start: 20090313, end: 20090314
  40. GLUCOSAE 5% [Concomitant]
     Route: 042
     Dates: start: 20090315, end: 20090319
  41. GLUCOSAE 5% [Concomitant]
     Route: 042
     Dates: start: 20090320, end: 20090321
  42. ALBUMIN (HUMAN) [Concomitant]
     Route: 042
     Dates: start: 20090316, end: 20090316
  43. AXETINE                            /00454602/ [Concomitant]
     Indication: DERMATITIS
     Route: 042
     Dates: start: 20090316, end: 20090320
  44. ARIXTRA [Concomitant]
     Indication: THROMBOCYTOPENIA
     Route: 058
     Dates: start: 20090319, end: 20090320
  45. UNASYN ORAL                        /00903601/ [Concomitant]
     Indication: DERMATITIS
     Route: 048
     Dates: start: 20090320, end: 20090320
  46. CALCIUM, COMBINATIONS WITH OTHER DRUGS [Concomitant]
     Route: 048
     Dates: start: 20090319, end: 20090320
  47. TROMBOCYTID (PLATELETS, HUMAN BLOOD) [Concomitant]
     Indication: THROMBOCYTOPENIA
     Route: 042
     Dates: start: 20090320, end: 20090320
  48. XANAX [Concomitant]
     Indication: NEUROSIS
     Route: 048
     Dates: start: 20090317, end: 20090317

REACTIONS (2)
  - HEPATIC ENZYME INCREASED [None]
  - THROMBOCYTOPENIA [None]
